FAERS Safety Report 9513252 (Version 2)
Quarter: 2013Q3

REPORT INFORMATION
  Report Type: Spontaneous
  Country: US (occurrence: US)
  Receive Date: 20130910
  Receipt Date: 20130910
  Transmission Date: 20140515
  Serious: Yes (Hospitalization)
  Sender: FDA-Public Use
  Company Number: CHPA2013US012278

PATIENT
  Age: 52 Year
  Sex: Female

DRUGS (6)
  1. HABITROL [Suspect]
     Indication: SMOKING CESSATION THERAPY
     Dosage: 7 MG, QD
     Route: 062
     Dates: start: 201307
  2. HABITROL [Suspect]
     Dosage: 14 MG, UNK
     Route: 062
     Dates: start: 201307
  3. HABITROL [Suspect]
     Dosage: UNK, UNK
     Route: 062
     Dates: start: 2002
  4. MORPHINE [Concomitant]
     Dosage: UNK, UNK
  5. VICODIN [Concomitant]
     Dosage: UNK, UNK
  6. CODEINE [Concomitant]
     Dosage: UNK, UNK

REACTIONS (3)
  - Gallbladder disorder [Unknown]
  - Nightmare [Recovered/Resolved]
  - Nicotine dependence [Unknown]
